FAERS Safety Report 19986256 (Version 4)
Quarter: 2022Q1

REPORT INFORMATION
  Report Type: Report from Study
  Country: US (occurrence: US)
  Receive Date: 20211022
  Receipt Date: 20220203
  Transmission Date: 20220423
  Serious: Yes (Hospitalization, Other)
  Sender: FDA-Public Use
  Company Number: US-ABBVIE-21K-163-4117195-00

PATIENT
  Sex: Female

DRUGS (7)
  1. HUMIRA [Suspect]
     Active Substance: ADALIMUMAB
     Indication: Ankylosing spondylitis
     Dosage: CITRATE-FREE
     Route: 058
     Dates: start: 202110
  2. HUMIRA [Suspect]
     Active Substance: ADALIMUMAB
     Indication: Rheumatoid arthritis
  3. HUMIRA [Suspect]
     Active Substance: ADALIMUMAB
     Indication: Uveitis
  4. HUMIRA [Suspect]
     Active Substance: ADALIMUMAB
     Indication: Uveitis
     Route: 058
     Dates: start: 2016
  5. HUMIRA [Suspect]
     Active Substance: ADALIMUMAB
     Indication: Ankylosing spondylitis
  6. HUMIRA [Suspect]
     Active Substance: ADALIMUMAB
     Indication: Rheumatoid arthritis
  7. ZYRTEC [Concomitant]
     Active Substance: CETIRIZINE HYDROCHLORIDE
     Indication: Product used for unknown indication

REACTIONS (34)
  - May-Thurner syndrome [Unknown]
  - Monoplegia [Unknown]
  - Spinal operation [Unknown]
  - Knee arthroplasty [Unknown]
  - Pulmonary embolism [Unknown]
  - Fatigue [Recovering/Resolving]
  - Mobility decreased [Not Recovered/Not Resolved]
  - Musculoskeletal disorder [Not Recovered/Not Resolved]
  - Joint range of motion decreased [Not Recovered/Not Resolved]
  - Nasal ulcer [Unknown]
  - Osteoarthritis [Unknown]
  - Drug ineffective [Unknown]
  - Spinal compression fracture [Unknown]
  - Mouth ulceration [Unknown]
  - Rubber sensitivity [Unknown]
  - Malaise [Unknown]
  - Dysstasia [Not Recovered/Not Resolved]
  - Gait inability [Not Recovered/Not Resolved]
  - Procedural pain [Unknown]
  - Eye disorder [Unknown]
  - Inflammation [Not Recovered/Not Resolved]
  - Thrombosis [Unknown]
  - Peripheral swelling [Not Recovered/Not Resolved]
  - Diarrhoea [Recovered/Resolved]
  - Drug ineffective [Unknown]
  - Injection site erythema [Recovering/Resolving]
  - Injection site reaction [Unknown]
  - Injection site pain [Recovered/Resolved]
  - Discomfort [Not Recovered/Not Resolved]
  - Back pain [Unknown]
  - Injection site pruritus [Unknown]
  - Injection site swelling [Unknown]
  - Oral herpes [Unknown]
  - Herpes virus infection [Unknown]

NARRATIVE: CASE EVENT DATE: 20190101
